APPROVED DRUG PRODUCT: NESINA
Active Ingredient: ALOGLIPTIN BENZOATE
Strength: EQ 12.5MG BASE
Dosage Form/Route: TABLET;ORAL
Application: N022271 | Product #002
Applicant: TAKEDA PHARMACEUTICALS USA INC
Approved: Jan 25, 2013 | RLD: Yes | RS: No | Type: RX

PATENTS:
Patent 7807689 | Expires: Jun 27, 2028
Patent 8697125 | Expires: Jun 16, 2029

EXCLUSIVITY:
Code: M-300 | Date: Jul 27, 2026